FAERS Safety Report 5390288-5 (Version None)
Quarter: 2007Q3

REPORT INFORMATION
  Report Type: 
  Country: None (occurrence: None)
  Receive Date: 20070718
  Receipt Date: 20070706
  Transmission Date: 20080115
  Serious: Yes (Other)
  Sender: FDA-Public Use
  Company Number: CL-PFIZER INC-2007056437

PATIENT
  Age: 70 Year
  Sex: Female

DRUGS (4)
  1. CARDURA [Suspect]
     Indication: HYPERTENSION
     Route: 048
     Dates: start: 20070704, end: 20070704
  2. CANDESARTAN [Concomitant]
  3. ATENOLOL [Concomitant]
  4. ATORVASTATIN [Concomitant]

REACTIONS (1)
  - LOSS OF CONSCIOUSNESS [None]
